FAERS Safety Report 4997450-1 (Version None)
Quarter: 2006Q2

REPORT INFORMATION
  Report Type: 
  Country: None (occurrence: None)
  Receive Date: 20060509
  Receipt Date: 20050419
  Transmission Date: 20061013
  Serious: Yes (Hospitalization, Other)
  Sender: FDA-Public Use
  Company Number: US-MERCK-0504USA03767

PATIENT
  Age: 57 Year
  Sex: Female
  Weight: 100 kg

DRUGS (1)
  1. VIOXX [Suspect]
     Indication: OSTEOARTHRITIS
     Route: 048
     Dates: start: 20000307, end: 20040301

REACTIONS (31)
  - ANAEMIA [None]
  - ANGINA PECTORIS [None]
  - ARTERIOSCLEROSIS CORONARY ARTERY [None]
  - ASTHENIA [None]
  - ASTHMA [None]
  - BURSITIS [None]
  - CEREBRAL INFARCTION [None]
  - CEREBROVASCULAR ACCIDENT [None]
  - CHEST PAIN [None]
  - CORONARY ARTERY DISEASE [None]
  - DEPRESSION [None]
  - DIABETES MELLITUS NON-INSULIN-DEPENDENT [None]
  - DIARRHOEA [None]
  - DYSPNOEA EXERTIONAL [None]
  - FATIGUE [None]
  - FLUSHING [None]
  - GASTRIC DISORDER [None]
  - GASTROINTESTINAL HAEMORRHAGE [None]
  - HEADACHE [None]
  - HYPERLIPIDAEMIA [None]
  - HYPOAESTHESIA FACIAL [None]
  - LACUNAR INFARCTION [None]
  - LYMPHADENOPATHY [None]
  - MITRAL VALVE CALCIFICATION [None]
  - MYOCARDIAL ISCHAEMIA [None]
  - OEDEMA PERIPHERAL [None]
  - PERIVENTRICULAR LEUKOMALACIA [None]
  - REFLUX OESOPHAGITIS [None]
  - SLEEP DISORDER [None]
  - THROMBOSIS [None]
  - UPPER RESPIRATORY TRACT INFECTION [None]
